FAERS Safety Report 10395583 (Version 3)
Quarter: 2014Q1

REPORT INFORMATION
  Report Type: Spontaneous
  Country: US (occurrence: None)
  Receive Date: 20130107
  Receipt Date: 20130524
  Transmission Date: 20141002
  Serious: Yes (Other)
  Sender: FDA-Public Use
  Company Number: PHEH2012US014511

PATIENT
  Age: 45 Year
  Sex: Female
  Weight: 59 kg

DRUGS (3)
  1. GILENYA (FTY) CAPSULE, 0.5MG [Suspect]
     Indication: MULTIPLE SCLEROSIS
     Route: 048
     Dates: start: 201107, end: 201204
  2. CONTRACEPTIVES (NO INGREDIENTS/SUBSTANCES) [Concomitant]
  3. ASACOL (MESALAZINE) MODIFIED-RELEASE TABLET, 400 MG [Concomitant]

REACTIONS (1)
  - Blood pressure increased [None]
